FAERS Safety Report 13149792 (Version 2)
Quarter: 2017Q3

REPORT INFORMATION
  Report Type: Spontaneous
  Country: IT (occurrence: IT)
  Receive Date: 20170125
  Receipt Date: 20170808
  Transmission Date: 20171127
  Serious: Yes (Other)
  Sender: FDA-Public Use
  Company Number: IT-SA-2017SA011258

PATIENT
  Age: 51 Year
  Sex: Female

DRUGS (6)
  1. OMEPRAZOLE. [Concomitant]
     Active Substance: OMEPRAZOLE
     Route: 065
  2. CARDIOASPIRIN [Concomitant]
     Active Substance: ASPIRIN
     Route: 065
  3. ORENCIA [Suspect]
     Active Substance: ABATACEPT
     Indication: RHEUMATOID ARTHRITIS
     Route: 058
     Dates: start: 20141001, end: 20161222
  4. DIBASE [Concomitant]
     Active Substance: CHOLECALCIFEROL
     Route: 065
  5. DELTACORTENE [Concomitant]
     Active Substance: PREDNISONE
     Route: 065
  6. ARAVA [Suspect]
     Active Substance: LEFLUNOMIDE
     Indication: RHEUMATOID ARTHRITIS
     Route: 048
     Dates: start: 20150724, end: 20161222

REACTIONS (1)
  - Acarodermatitis [Recovering/Resolving]

NARRATIVE: CASE EVENT DATE: 20161222
